FAERS Safety Report 7345164-5 (Version None)
Quarter: 2011Q1

REPORT INFORMATION
  Report Type: 
  Country: None (occurrence: None)
  Receive Date: 20110310
  Receipt Date: 20101007
  Transmission Date: 20110831
  Serious: Yes (Hospitalization)
  Sender: FDA-Public Use
  Company Number: US-BAYER-201034867NA

PATIENT
  Sex: Female
  Weight: 52.154 kg

DRUGS (11)
  1. YAZ [Suspect]
     Indication: CONTRACEPTION
     Dosage: UNK
     Dates: start: 20070401, end: 20071101
  2. PHENERGAN [Concomitant]
     Indication: VOMITING
     Dosage: 12.5 MG, PRN
     Route: 048
     Dates: start: 20071023
  3. YASMIN [Suspect]
     Indication: CONTRACEPTION
     Dosage: UNK
     Dates: start: 20070401, end: 20071101
  4. MOTRIN [Concomitant]
     Indication: PRODUCT USED FOR UNKNOWN INDICATION
     Dosage: 800 MG, UNK
  5. PAXIL [Concomitant]
     Indication: ANXIETY
     Dosage: 20 MG, QD
     Route: 048
     Dates: start: 20071023
  6. FIORICET [Concomitant]
     Indication: PRODUCT USED FOR UNKNOWN INDICATION
     Dosage: UNK
     Dates: start: 20071101
  7. INFLUENZA VACCINE [Concomitant]
     Dosage: UNK
     Dates: start: 20071101
  8. POTASSIUM [POTASSIUM] [Concomitant]
     Indication: PRODUCT USED FOR UNKNOWN INDICATION
     Dosage: UNK
     Dates: start: 20071101
  9. IBUPROFEN [Concomitant]
     Dosage: 800 MG, UNK
     Dates: start: 20071217
  10. OCELLA [Suspect]
     Indication: PRODUCT USED FOR UNKNOWN INDICATION
  11. SEROQUEL [Concomitant]
     Indication: DEPRESSION
     Dosage: 25 MG, UNK
     Route: 048
     Dates: start: 20070501

REACTIONS (7)
  - CEREBROVASCULAR ACCIDENT [None]
  - TINNITUS [None]
  - HEADACHE [None]
  - DIZZINESS [None]
  - THALAMIC INFARCTION [None]
  - HYPOAESTHESIA [None]
  - PARAESTHESIA [None]
